FAERS Safety Report 7935628-5 (Version None)
Quarter: 2011Q4

REPORT INFORMATION
  Report Type: 
  Country: None (occurrence: None)
  Receive Date: 20111118
  Receipt Date: 20111103
  Transmission Date: 20120403
  Serious: Yes (Hospitalization)
  Sender: FDA-Public Use
  Company Number: 2011110064

PATIENT
  Age: 27 Year
  Sex: Female

DRUGS (1)
  1. MESALAMINE [Suspect]
     Indication: COLITIS ULCERATIVE

REACTIONS (3)
  - PLEURISY [None]
  - LYMPHOCYTE STIMULATION TEST POSITIVE [None]
  - DRUG HYPERSENSITIVITY [None]
